FAERS Safety Report 23691230 (Version 2)
Quarter: 2024Q2

REPORT INFORMATION
  Report Type: Spontaneous
  Country: US (occurrence: US)
  Receive Date: 20240401
  Receipt Date: 20240519
  Transmission Date: 20240715
  Serious: No
  Sender: FDA-Public Use
  Company Number: US-GSK-US2024AMR037121

PATIENT
  Sex: Female

DRUGS (2)
  1. SUMATRIPTAN SUCCINATE [Suspect]
     Active Substance: SUMATRIPTAN SUCCINATE
     Indication: Product used for unknown indication
     Dosage: UNK 6MG, 2-UD SYRINGE
  2. SUMATRIPTAN SUCCINATE [Suspect]
     Active Substance: SUMATRIPTAN SUCCINATE

REACTIONS (17)
  - Haemorrhage [Unknown]
  - Trigger points [Unknown]
  - Contusion [Unknown]
  - Injection site pain [Unknown]
  - Injection site warmth [Unknown]
  - Injection site erythema [Unknown]
  - Hot flush [Unknown]
  - Dizziness [Unknown]
  - Paraesthesia [Unknown]
  - Hypoaesthesia [Unknown]
  - Asthenia [Unknown]
  - Somnolence [Unknown]
  - Fatigue [Unknown]
  - Dyspnoea [Unknown]
  - Wrong technique in device usage process [Unknown]
  - Incorrect dose administered [Unknown]
  - Product complaint [Unknown]
